FAERS Safety Report 23479914 (Version 1)
Quarter: 2024Q1

REPORT INFORMATION
  Report Type: Spontaneous
  Country: US (occurrence: US)
  Receive Date: 20240205
  Receipt Date: 20240205
  Transmission Date: 20240410
  Serious: No
  Sender: FDA-Public Use
  Company Number: US-UCBSA-2023045879

PATIENT
  Age: 67 Year
  Sex: Male

DRUGS (15)
  1. LEVETIRACETAM [Suspect]
     Active Substance: LEVETIRACETAM
     Indication: Seizure
     Dosage: UNK
  2. MIDAZOLAM HYDROCHLORIDE [Suspect]
     Active Substance: MIDAZOLAM HYDROCHLORIDE
     Indication: Seizure
     Dosage: 5 MG/H INFUSION
  3. MIDAZOLAM HYDROCHLORIDE [Suspect]
     Active Substance: MIDAZOLAM HYDROCHLORIDE
     Dosage: UNK
  4. LORAZEPAM [Suspect]
     Active Substance: LORAZEPAM
     Indication: Tachycardia
     Dosage: 4 MILLIGRAM
     Route: 042
  5. LORAZEPAM [Suspect]
     Active Substance: LORAZEPAM
     Indication: Tremor
  6. LORAZEPAM [Suspect]
     Active Substance: LORAZEPAM
     Indication: Seizure
  7. DIAZEPAM [Suspect]
     Active Substance: DIAZEPAM
     Indication: Tachycardia
     Dosage: 10 MILLIGRAM
     Route: 042
  8. DIAZEPAM [Suspect]
     Active Substance: DIAZEPAM
     Indication: Tremor
  9. DIAZEPAM [Suspect]
     Active Substance: DIAZEPAM
     Indication: Seizure
  10. KETAMINE [Suspect]
     Active Substance: KETAMINE
     Indication: Seizure
     Dosage: UNK
  11. KETAMINE [Suspect]
     Active Substance: KETAMINE
     Dosage: 146MG/H INFUSION
  12. AMIFAMPRIDINE [Concomitant]
     Active Substance: AMIFAMPRIDINE
     Indication: Suicide attempt
     Dosage: 100 MILLIGRAM
  13. AMIFAMPRIDINE [Concomitant]
     Active Substance: AMIFAMPRIDINE
     Indication: Myasthenic syndrome
  14. ACTIVATED CHARCOAL [Concomitant]
     Active Substance: ACTIVATED CHARCOAL
     Indication: Product used for unknown indication
     Dosage: 50 GRAM
  15. ACETAMINOPHEN [Concomitant]
     Active Substance: ACETAMINOPHEN
     Indication: Suicide attempt
     Dosage: 24.5 GRAM

REACTIONS (1)
  - Multiple-drug resistance [Unknown]
